FAERS Safety Report 9305497 (Version 1)
Quarter: 2013Q2

REPORT INFORMATION
  Report Type: Spontaneous
  Country: CN (occurrence: CN)
  Receive Date: 20130523
  Receipt Date: 20130523
  Transmission Date: 20140414
  Serious: Yes (Hospitalization)
  Sender: FDA-Public Use
  Company Number: CN-AMGEN-CHNOT2013036017

PATIENT
  Age: 49 Year
  Sex: Male

DRUGS (2)
  1. GRAN [Suspect]
     Indication: LEUKOPENIA
     Dosage: 150 MUG, 1 DAYS
     Route: 058
     Dates: start: 20120612, end: 20120614
  2. OFLOXACIN [Suspect]
     Indication: LEUKOPENIA
     Dosage: 0.3 G, QD
     Route: 042
     Dates: start: 20120609, end: 20120612

REACTIONS (2)
  - Liver disorder [Not Recovered/Not Resolved]
  - Rash maculo-papular [Not Recovered/Not Resolved]
